FAERS Safety Report 9252222 (Version 1)
Quarter: 2013Q1

REPORT INFORMATION
  Report Type: Spontaneous
  Country: US (occurrence: None)
  Receive Date: 20130305
  Receipt Date: 20130305
  Transmission Date: 20140127
  Serious: Yes (Other)
  Sender: FDA-Public Use
  Company Number: 163-21880-12083071

PATIENT
  Age: 51 Year
  Sex: Female
  Weight: 104.33 kg

DRUGS (5)
  1. REVLIMID [Suspect]
     Indication: PLASMA CELL MYELOMA
     Dosage: 21 IN 28 D?
     Route: 048
     Dates: start: 20120515
  2. ACYCLOVIR(ACICLOVIR)(UNKNOWN) [Concomitant]
  3. ASPIRIN(ACETYLSALICYLIC ACID)(UNKNOWN) [Concomitant]
  4. DEXAMETHASONE(DEXAMETHASONE)(UNKNOWN) [Concomitant]
  5. VELCADE(BORTEZOMIB)(UNKNOWN) [Concomitant]

REACTIONS (3)
  - Blood potassium decreased [None]
  - Local swelling [None]
  - Muscle spasms [None]
